FAERS Safety Report 12573114 (Version 1)
Quarter: 2016Q3

REPORT INFORMATION
  Report Type: Spontaneous
  Country: GB (occurrence: None)
  Receive Date: 20160718
  Receipt Date: 20160718
  Transmission Date: 20161109
  Serious: No
  Sender: FDA-Public Use
  Company Number: GB2016K3269SPO

PATIENT
  Age: 44 Year
  Sex: Female
  Weight: 53.97 kg

DRUGS (5)
  1. TECFIDERA (DIMETHYL FUMARATE) [Concomitant]
  2. OXYCODONE AND NALOXONE (NALOXONE, OXYCODONE) [Concomitant]
  3. METFORMIN [Concomitant]
     Active Substance: METFORMIN HYDROCHLORIDE
  4. LANSOPRAZOLE GENERIC (LANSOPRAZOLE) UNKNOWN [Suspect]
     Active Substance: LANSOPRAZOLE
     Indication: DYSPEPSIA
     Route: 048
     Dates: start: 20130101, end: 20160612
  5. FEXOFENADINE [Concomitant]
     Active Substance: FEXOFENADINE\FEXOFENADINE HYDROCHLORIDE

REACTIONS (10)
  - Reaction to preservatives [None]
  - Hypoglycaemia [None]
  - Dyspepsia [None]
  - Irritable bowel syndrome [None]
  - Loss of consciousness [None]
  - Food allergy [None]
  - Drug intolerance [None]
  - Lactose intolerance [None]
  - Rash [None]
  - Urticaria [None]

NARRATIVE: CASE EVENT DATE: 20160506
